FAERS Safety Report 13076199 (Version 1)
Quarter: 2016Q4

REPORT INFORMATION
  Report Type: Spontaneous
  Country: CH (occurrence: CH)
  Receive Date: 20161230
  Receipt Date: 20161230
  Transmission Date: 20170207
  Serious: Yes (Other)
  Sender: FDA-Public Use
  Company Number: CH-BRISTOL-MYERS SQUIBB COMPANY-BMS-2016-109800

PATIENT
  Sex: Male

DRUGS (1)
  1. YERVOY [Suspect]
     Active Substance: IPILIMUMAB
     Indication: METASTATIC MALIGNANT MELANOMA
     Dosage: 3 MG/KG, Q3WK
     Route: 042
     Dates: start: 201511, end: 201512

REACTIONS (6)
  - Hypophysitis [Unknown]
  - Rash [Unknown]
  - Vertigo [Unknown]
  - Dizziness [Unknown]
  - Fatigue [Unknown]
  - Ataxia [Unknown]

NARRATIVE: CASE EVENT DATE: 20151231
